FAERS Safety Report 23576100 (Version 4)
Quarter: 2024Q3

REPORT INFORMATION
  Report Type: Spontaneous
  Country: US (occurrence: US)
  Receive Date: 20240228
  Receipt Date: 20240807
  Transmission Date: 20241017
  Serious: Yes (Other)
  Sender: BRISTOL MYERS SQUIBB
  Company Number: US-BRISTOL-MYERS SQUIBB COMPANY-2024-030410

PATIENT
  Age: 63 Year
  Sex: Female

DRUGS (2)
  1. SPRYCEL [Suspect]
     Active Substance: DASATINIB
     Indication: Chronic myeloid leukaemia
     Dosage: FREQUENCY: DAILY.
     Route: 048
     Dates: start: 202402
  2. SPRYCEL [Suspect]
     Active Substance: DASATINIB
     Route: 048
     Dates: start: 202402

REACTIONS (5)
  - Neuropathy peripheral [Unknown]
  - Iron deficiency anaemia [Not Recovered/Not Resolved]
  - Hypothyroidism [Unknown]
  - Decreased activity [Unknown]
  - Pain [Unknown]
